FAERS Safety Report 9677597 (Version 2)
Quarter: 2013Q4

REPORT INFORMATION
  Report Type: Report from Study
  Country: SK (occurrence: SK)
  Receive Date: 20131108
  Receipt Date: 20131126
  Transmission Date: 20140711
  Serious: Yes (Hospitalization)
  Sender: FDA-Public Use
  Company Number: SK-JNJFOC-20131100322

PATIENT
  Age: 59 Year
  Sex: Male
  Weight: 62 kg

DRUGS (3)
  1. INFLIXIMAB, RECOMBINANT [Suspect]
     Indication: PSORIASIS
     Route: 042
     Dates: start: 200708, end: 201008
  2. ADALIMUMAB [Suspect]
     Indication: PSORIASIS
     Route: 065
     Dates: start: 201009
  3. ADALIMUMAB [Suspect]
     Indication: PSORIASIS
     Route: 065
     Dates: start: 20130821, end: 20131104

REACTIONS (1)
  - Prostate cancer [Not Recovered/Not Resolved]
